FAERS Safety Report 4622316-6 (Version None)
Quarter: 2005Q1

REPORT INFORMATION
  Report Type: 
  Country: None (occurrence: None)
  Receive Date: 20050328
  Receipt Date: 20050121
  Transmission Date: 20050727
  Serious: Yes (Other)
  Sender: FDA-Public Use
  Company Number: 2005021297

PATIENT
  Age: 68 Year
  Sex: Male

DRUGS (5)
  1. BEXTRA [Suspect]
     Indication: PAIN IN JAW
     Dosage: 40 MG (20 MG, 2 IN 1 D) ORAL
     Route: 048
     Dates: start: 20050112, end: 20050113
  2. GLIPIZIDE [Concomitant]
  3. DIGOXIN [Concomitant]
  4. ACETYL SALICYLIC ACID USP BAT [Concomitant]
  5. VERAPAMIL HYDROCHLORIDE [Concomitant]

REACTIONS (3)
  - FACE OEDEMA [None]
  - OEDEMA MOUTH [None]
  - TONGUE OEDEMA [None]
